FAERS Safety Report 9142079 (Version 1)
Quarter: 2013Q1

REPORT INFORMATION
  Report Type: Spontaneous
  Country: US (occurrence: US)
  Receive Date: 20130305
  Receipt Date: 20130305
  Transmission Date: 20140127
  Serious: No
  Sender: FDA-Public Use
  Company Number: US-AMGEN-USASP2013009734

PATIENT
  Age: 20 Year
  Sex: Male
  Weight: 113.8 kg

DRUGS (3)
  1. ENBREL [Suspect]
     Indication: PSORIATIC ARTHROPATHY
     Dosage: 50 MG,EVERY TWO AND HALF WEEKS
     Route: 058
     Dates: start: 20100408
  2. DICLOFENAC [Concomitant]
     Indication: PAIN
     Dosage: 75 UNK, BID
     Route: 048
     Dates: start: 201207
  3. METHOTREXATE [Concomitant]
     Indication: ARTHRITIS
     Dosage: 25 UNK, QWK
     Route: 048
     Dates: start: 20111207

REACTIONS (4)
  - Arthralgia [Not Recovered/Not Resolved]
  - Pain in extremity [Not Recovered/Not Resolved]
  - Gait disturbance [Not Recovered/Not Resolved]
  - Condition aggravated [Unknown]
